FAERS Safety Report 6287516-0 (Version None)
Quarter: 2009Q3

REPORT INFORMATION
  Report Type: 
  Country: None (occurrence: None)
  Receive Date: 20090727
  Receipt Date: 20090715
  Transmission Date: 20100115
  Serious: Yes (Death, Hospitalization)
  Sender: FDA-Public Use
  Company Number: 2008AL012230

PATIENT
  Age: 68 Year
  Sex: Female

DRUGS (25)
  1. DIGOXIN [Suspect]
     Indication: CARDIAC FAILURE CONGESTIVE
     Dosage: 0.25MG, PO
     Route: 048
  2. LODINE [Concomitant]
  3. TARKA [Concomitant]
  4. GLUCOPHAGE [Concomitant]
  5. GLUCOTROL [Concomitant]
  6. PREDNISONE [Concomitant]
  7. DARVOCET [Concomitant]
  8. HYDROCHLOROTHIAZIDE [Concomitant]
  9. MULTI-VITAMINS [Concomitant]
  10. FISH OIL [Concomitant]
  11. CALCIUM [Concomitant]
  12. ASPIRIN [Concomitant]
  13. SULFASALAZINE [Concomitant]
  14. FOLIC ACID [Concomitant]
  15. LANTUS [Concomitant]
  16. HUMALOG [Concomitant]
  17. WELCHOL [Concomitant]
  18. NEXIUM [Concomitant]
  19. TOPROL-XL [Concomitant]
  20. ASPIRIN [Concomitant]
  21. AVAPRO [Concomitant]
  22. AZULFIDINE EN-TABS [Concomitant]
  23. PRILOSEC [Concomitant]
  24. TIKOSYN [Concomitant]
  25. AMLODIPINE [Concomitant]

REACTIONS (13)
  - ABDOMINAL PAIN UPPER [None]
  - ATRIAL FIBRILLATION [None]
  - ATRIAL FLUTTER [None]
  - ATRIOVENTRICULAR BLOCK COMPLETE [None]
  - BRADYCARDIA [None]
  - DIABETIC KETOACIDOSIS [None]
  - ECONOMIC PROBLEM [None]
  - HYPOTENSION [None]
  - INJURY [None]
  - MELAENA [None]
  - PAIN [None]
  - THERAPEUTIC AGENT TOXICITY [None]
  - UNEVALUABLE EVENT [None]
